FAERS Safety Report 14519350 (Version 2)
Quarter: 2018Q1

REPORT INFORMATION
  Report Type: Spontaneous
  Country: US (occurrence: US)
  Receive Date: 20180212
  Receipt Date: 20180220
  Transmission Date: 20180509
  Serious: No
  Sender: FDA-Public Use
  Company Number: US-PFIZER INC-2018061651

PATIENT
  Age: 85 Year
  Sex: Female
  Weight: 53 kg

DRUGS (12)
  1. PROCARDIA [Concomitant]
     Active Substance: NIFEDIPINE
     Dosage: 120 MG, DAILY (60 MG, TWO PER DAY IN THE MORNING)
  2. BIOTIN [Concomitant]
     Active Substance: BIOTIN
     Indication: SKIN DISORDER
     Dosage: 1000 MG, 1X/DAY (1000MG TABLET BY MOUTH ONCE A DAY)
     Route: 048
  3. BIOTIN [Concomitant]
     Active Substance: BIOTIN
     Indication: NAIL DISORDER
  4. LECITHIN [Concomitant]
     Active Substance: LECITHIN
     Indication: NERVOUS SYSTEM DISORDER
     Dosage: 1200 MG, 1X/DAY (1200MG BY MOUTH ONCE A DAY)
     Route: 048
  5. PROCARDIA [Concomitant]
     Active Substance: NIFEDIPINE
     Indication: HYPERTENSION
     Dosage: 60 MG, 1X/DAY TWO 30MG TABLETS BY MOUTH ONCE A DAY
     Route: 048
  6. BIOTIN [Concomitant]
     Active Substance: BIOTIN
     Indication: HAIR DISORDER
  7. CELEBREX [Suspect]
     Active Substance: CELECOXIB
     Indication: ARTHRALGIA
     Dosage: 200 MG, 1X/DAY (200MG CAPSULE BY MOUTH ONCE A DAY)
     Route: 048
     Dates: start: 2008
  8. ALEVE [Concomitant]
     Active Substance: NAPROXEN SODIUM
     Dosage: UNK
  9. TRAMADOL. [Concomitant]
     Active Substance: TRAMADOL
     Indication: PAIN
     Dosage: 50 MG, 1X/DAY (50MG PILL BY MOUTH ONCE AT NIGHT BY MOUTH)
     Route: 048
  10. TRAZODONE [Concomitant]
     Active Substance: TRAZODONE HYDROCHLORIDE
     Indication: SLEEP DISORDER
     Dosage: 100 MG, DAILY (100MG PILL AT NIGHT BY MOUTH)
     Route: 048
  11. LORAZEPAM. [Concomitant]
     Active Substance: LORAZEPAM
     Indication: RESTLESS LEGS SYNDROME
     Dosage: 0.5 MG, DAILY (0.5MG PILL BY MOUTH AT BEDTIME)
     Route: 048
  12. PROBIOTICS [Concomitant]
     Active Substance: PROBIOTICS NOS
     Dosage: UNK, 1X/DAY (ONCE A DAY)

REACTIONS (1)
  - Drug dose omission [Unknown]
